FAERS Safety Report 25402931 (Version 2)
Quarter: 2025Q3

REPORT INFORMATION
  Report Type: Spontaneous
  Country: TW (occurrence: TW)
  Receive Date: 20250605
  Receipt Date: 20250903
  Transmission Date: 20251020
  Serious: Yes (Hospitalization, Other)
  Sender: BRISTOL-MYERS SQUIBB COMPANY
  Company Number: TW-BRISTOL-MYERS SQUIBB COMPANY-2025-079129

PATIENT
  Age: 74 Year
  Sex: Male
  Weight: 48.4 kg

DRUGS (11)
  1. OPDIVO [Suspect]
     Active Substance: NIVOLUMAB
     Indication: Adenocarcinoma gastric
     Dosage: EVERY 2 WEEKS,  NIVOLUMAB/CAPEOXX6
     Route: 042
     Dates: start: 20240803, end: 20241019
  2. OPDIVO [Suspect]
     Active Substance: NIVOLUMAB
     Route: 042
     Dates: start: 20241122, end: 20250103
  3. CAPECITABINE [Suspect]
     Active Substance: CAPECITABINE
     Indication: Adenocarcinoma gastric
     Route: 048
     Dates: start: 20240705, end: 20241019
  4. ASPIRIN [Concomitant]
     Active Substance: ASPIRIN
     Indication: Hypertensive heart disease
     Dosage: ENTERICMICROEN CAPSULATED CAPSULES
     Route: 048
     Dates: start: 20230616
  5. CRESTOR [Concomitant]
     Active Substance: ROSUVASTATIN CALCIUM
     Indication: Hypertensive heart disease
     Dosage: ENTERICMICROEN CAPSULATED CAPSULES
     Route: 048
     Dates: start: 20230616
  6. REPAGLINIDE [Concomitant]
     Active Substance: REPAGLINIDE
     Indication: Diabetes mellitus
     Dosage: CYH
     Route: 048
     Dates: start: 20241019
  7. LINAGLIPTIN [Concomitant]
     Active Substance: LINAGLIPTIN
     Indication: Diabetes mellitus
     Route: 048
     Dates: start: 20241112
  8. TOUJEO [Concomitant]
     Active Substance: INSULIN GLARGINE
     Indication: Diabetes mellitus
     Dosage: 16U 300UNITS/ML
     Route: 058
     Dates: start: 20241112
  9. METHYLCOBALAMIN [Concomitant]
     Active Substance: METHYLCOBALAMIN
     Indication: Malnutrition
     Dosage: EISAI
     Route: 048
  10. FOLIROMIN [Concomitant]
     Indication: Malnutrition
     Dosage: EISAI
     Route: 048
     Dates: start: 20231002, end: 20250521
  11. EXELON [Concomitant]
     Active Substance: RIVASTIGMINE TARTRATE
     Indication: Dementia
     Dosage: EISAI
     Route: 048
     Dates: start: 20240531, end: 20250521

REACTIONS (3)
  - Immune-mediated hepatitis [Recovering/Resolving]
  - Biliary dilatation [Unknown]
  - Chronic hepatitis [Unknown]

NARRATIVE: CASE EVENT DATE: 20250116
